FAERS Safety Report 24681614 (Version 2)
Quarter: 2025Q3

REPORT INFORMATION
  Report Type: Spontaneous
  Country: GB (occurrence: GB)
  Receive Date: 20241130
  Receipt Date: 20250803
  Transmission Date: 20251021
  Serious: Yes (Life-Threatening)
  Sender: ALEXION PHARMACEUTICALS
  Company Number: GB-MHRA-EMIS-4113-1bce372c-1203-49f7-9004-cdbe4b9c41d1

PATIENT
  Age: 66 Year
  Sex: Male
  Weight: 64 kg

DRUGS (9)
  1. CRESTOR [Suspect]
     Active Substance: ROSUVASTATIN CALCIUM
     Route: 065
     Dates: start: 20241024, end: 20241120
  2. AMOXICILLIN [Concomitant]
     Active Substance: AMOXICILLIN
     Indication: Lung consolidation
     Route: 065
     Dates: start: 20240828, end: 20240926
  3. AMOXICILLIN [Concomitant]
     Active Substance: AMOXICILLIN
     Indication: Lung consolidation
  4. PREDNISOLONE [Concomitant]
     Active Substance: PREDNISOLONE
     Indication: Adverse drug reaction
     Route: 065
     Dates: start: 20240828, end: 20240926
  5. PREDNISOLONE [Concomitant]
     Active Substance: PREDNISOLONE
     Indication: Adverse drug reaction
     Route: 065
     Dates: start: 20241016, end: 20241114
  6. MEBEVERINE [Concomitant]
     Active Substance: MEBEVERINE
     Indication: Abdominal pain
     Route: 065
  7. MEBEVERINE [Concomitant]
     Active Substance: MEBEVERINE
     Indication: Abdominal pain
  8. ATORVASTATIN [Concomitant]
     Active Substance: ATORVASTATIN
     Route: 065
     Dates: start: 20241008, end: 20241024
  9. Comirnaty [Concomitant]
     Route: 065

REACTIONS (1)
  - Dyspnoea [Recovered/Resolved]

NARRATIVE: CASE EVENT DATE: 20241025
